FAERS Safety Report 5242454-7 (Version None)
Quarter: 2007Q1

REPORT INFORMATION
  Report Type: 
  Country: None (occurrence: None)
  Receive Date: 20070221
  Receipt Date: 20070215
  Transmission Date: 20070707
  Serious: Yes (Other)
  Sender: FDA-Public Use
  Company Number: AU-BRISTOL-MYERS SQUIBB COMPANY-13681242

PATIENT
  Age: 83 Year
  Sex: Male

DRUGS (1)
  1. KENACORT [Suspect]
     Dates: start: 20051117

REACTIONS (3)
  - COMA [None]
  - ERYTHEMA [None]
  - PRURITUS [None]
